FAERS Safety Report 9746285 (Version 1)
Quarter: 2013Q4

REPORT INFORMATION
  Report Type: Spontaneous
  Country: ES (occurrence: ES)
  Receive Date: 20131211
  Receipt Date: 20131211
  Transmission Date: 20140711
  Serious: Yes (Other)
  Sender: FDA-Public Use
  Company Number: ES-009507513-1312ESP001657

PATIENT
  Age: 45 Year
  Sex: Male

DRUGS (1)
  1. SYCREST [Suspect]
     Indication: PRODUCT USED FOR UNKNOWN INDICATION
     Dosage: 10 MG, QD
     Route: 060
     Dates: start: 20131004

REACTIONS (1)
  - Oral candidiasis [Recovering/Resolving]
